FAERS Safety Report 24760682 (Version 1)
Quarter: 2024Q4

REPORT INFORMATION
  Report Type: Spontaneous
  Country: US (occurrence: None)
  Receive Date: 20241220
  Receipt Date: 20241220
  Transmission Date: 20250115
  Serious: Yes (unspecified)
  Sender: Public
  Company Number: None

PATIENT
  Age: 59 Year
  Sex: Female

DRUGS (1)
  1. HUMIRA [Suspect]
     Active Substance: ADALIMUMAB
     Dosage: FREQUENCY : EVERY OTHER WEEK;?

REACTIONS (7)
  - Magnetic resonance imaging abnormal [None]
  - Central nervous system lesion [None]
  - Demyelination [None]
  - Throat tightness [None]
  - Dysphonia [None]
  - Dysphagia [None]
  - Multiple sclerosis [None]
